FAERS Safety Report 7959637-5 (Version None)
Quarter: 2011Q4

REPORT INFORMATION
  Report Type: 
  Country: None (occurrence: None)
  Receive Date: 20111206
  Receipt Date: 20111121
  Transmission Date: 20120403
  Serious: Yes (Death)
  Sender: FDA-Public Use
  Company Number: US-WATSON-2011-18775

PATIENT
  Sex: Female
  Weight: 80.726 kg

DRUGS (1)
  1. DESOGESTREL AND ETHINYL ESTRADIOL [Suspect]
     Indication: ORAL CONTRACEPTION
     Dosage: 1 TABLET DAILY
     Route: 048
     Dates: start: 20110401, end: 20110913

REACTIONS (5)
  - BRAIN HERNIATION [None]
  - INCOHERENT [None]
  - VOMITING [None]
  - INFLUENZA LIKE ILLNESS [None]
  - INTRACRANIAL VENOUS SINUS THROMBOSIS [None]
